FAERS Safety Report 12771939 (Version 1)
Quarter: 2016Q3

REPORT INFORMATION
  Report Type: Spontaneous
  Country: US (occurrence: US)
  Receive Date: 20160922
  Receipt Date: 20160922
  Transmission Date: 20161109
  Serious: No
  Sender: FDA-Public Use
  Company Number: US-BAYER-2016-184276

PATIENT
  Age: 93 Year
  Sex: Male
  Weight: 72.56 kg

DRUGS (3)
  1. PHILLIPS^ FIBER GOOD GUMMIES [Suspect]
     Active Substance: INULIN
     Dosage: 4 DF, UNK
     Route: 048
     Dates: start: 201606
  2. PHILLIPS^ FIBER GOOD GUMMIES [Suspect]
     Active Substance: INULIN
     Dosage: 2 DF, QD
     Dates: start: 2016, end: 20160921
  3. MIRALAX [Suspect]
     Active Substance: POLYETHYLENE GLYCOL 3350
     Dosage: UNK, QD

REACTIONS (3)
  - Product use issue [Unknown]
  - Flatulence [Unknown]
  - Product use issue [Unknown]

NARRATIVE: CASE EVENT DATE: 2016
